FAERS Safety Report 22896431 (Version 3)
Quarter: 2023Q4

REPORT INFORMATION
  Report Type: Report from Study
  Country: US (occurrence: US)
  Receive Date: 20230901
  Receipt Date: 20231012
  Transmission Date: 20240109
  Serious: No
  Sender: FDA-Public Use
  Company Number: US-002147023-NVSC2023US189756

PATIENT
  Sex: Female

DRUGS (2)
  1. TABRECTA [Suspect]
     Active Substance: CAPMATINIB
     Indication: Product used for unknown indication
     Dosage: UNK
     Route: 048
     Dates: start: 20230811
  2. TABRECTA [Suspect]
     Active Substance: CAPMATINIB
     Dosage: 600 MG
     Route: 065

REACTIONS (4)
  - Abdominal discomfort [Unknown]
  - Lipase increased [Unknown]
  - Nausea [Unknown]
  - Pancreatic enzymes increased [Unknown]
